FAERS Safety Report 8957183 (Version 2)
Quarter: 2013Q1

REPORT INFORMATION
  Report Type: Spontaneous
  Country: DE (occurrence: DE)
  Receive Date: 20121210
  Receipt Date: 20130215
  Transmission Date: 20140127
  Serious: Yes (Death, Hospitalization)
  Sender: FDA-Public Use
  Company Number: DE-ROCHE-1166794

PATIENT
  Sex: Male
  Weight: 56 kg

DRUGS (6)
  1. PEGASYS [Suspect]
     Indication: CHRONIC HEPATITIS C
     Route: 058
     Dates: start: 20121010
  2. RIBAVIRIN [Suspect]
     Indication: CHRONIC HEPATITIS C
     Route: 048
     Dates: start: 20121113
  3. RIBAVIRIN [Suspect]
     Route: 048
     Dates: start: 20121001, end: 20121112
  4. INCIVO [Suspect]
     Indication: CHRONIC HEPATITIS C
     Route: 048
     Dates: start: 20121001
  5. MORPHINE [Concomitant]
     Indication: OSTEOPOROSIS
     Route: 048
     Dates: start: 20120801
  6. DIAZEPAM [Concomitant]
     Route: 065

REACTIONS (6)
  - Pneumonia [Fatal]
  - Septic shock [Fatal]
  - Multi-organ failure [Fatal]
  - Bronchitis bacterial [Unknown]
  - Anaemia [Unknown]
  - Leukopenia [Unknown]
